FAERS Safety Report 9444766 (Version 1)
Quarter: 2013Q3

REPORT INFORMATION
  Report Type: Not Available
  Country: CH (occurrence: CH)
  Receive Date: 20130807
  Receipt Date: 20130807
  Transmission Date: 20140515
  Serious: Yes (Death, Other)
  Sender: FDA-Public Use
  Company Number: CH-ASTELLAS-2013EU006748

PATIENT
  Age: 75 Year
  Sex: Male

DRUGS (6)
  1. XTANDI [Suspect]
     Indication: PROSTATE CANCER
     Dosage: 160 MG, UID/QD
     Route: 048
  2. PREDNISON [Concomitant]
     Dosage: 20 MG, UID/QD
     Route: 048
  3. FLORINEF [Concomitant]
     Dosage: 0.1 MG, OTHER
     Route: 048
  4. DUROGESIC [Concomitant]
     Dosage: 25 UG, OTHER
     Route: 065
  5. ACIDUM FOLICUM [Concomitant]
     Dosage: 5 MG, WEEKLY
     Route: 048
  6. PANTOZOL                           /01263204/ [Concomitant]
     Dosage: 20 MG, UID/QD
     Route: 048

REACTIONS (2)
  - Pulmonary hypertension [Fatal]
  - Lung infiltration [Fatal]
